FAERS Safety Report 6180586-X (Version None)
Quarter: 2009Q2

REPORT INFORMATION
  Report Type: 
  Country: None (occurrence: None)
  Receive Date: 20090504
  Receipt Date: 20090504
  Transmission Date: 20091009
  Serious: Yes (Death, Hospitalization)
  Sender: FDA-Public Use
  Company Number: None

PATIENT
  Weight: 90 kg

DRUGS (2)
  1. GEMCITABINE [Suspect]
     Indication: PANCREATIC CARCINOMA METASTATIC
     Dosage: QW IV
     Route: 042
     Dates: start: 20090401, end: 20090401
  2. PLACEBO SOLUTION FOR INFUSION [Suspect]
     Indication: PANCREATIC CARCINOMA METASTATIC
     Dosage: 368 MG Q2W IV
     Route: 042
     Dates: start: 20090315, end: 20090325

REACTIONS (2)
  - GENERAL PHYSICAL HEALTH DETERIORATION [None]
  - NEPHROTIC SYNDROME [None]
